FAERS Safety Report 5541443-2 (Version None)
Quarter: 2007Q4

REPORT INFORMATION
  Report Type: 
  Country: None (occurrence: None)
  Receive Date: 20071210
  Receipt Date: 20071126
  Transmission Date: 20080405
  Serious: Yes (Other)
  Sender: FDA-Public Use
  Company Number: US-BAYER-US-2007-042266

PATIENT
  Age: 36 Year
  Sex: Female
  Weight: 87 kg

DRUGS (4)
  1. MIRENA [Suspect]
     Indication: CONTRACEPTION
     Route: 015
     Dates: start: 20070518, end: 20070824
  2. PERCOCET [Concomitant]
     Indication: BACK PAIN
     Dosage: UNIT DOSE: 325 MG
     Route: 048
     Dates: start: 20010101
  3. ZANAFLEX [Concomitant]
     Indication: MUSCLE SPASMS
     Dosage: UNIT DOSE: 4 MG
     Route: 048
  4. ELAVIL [Concomitant]
     Indication: NEUROPATHY
     Dosage: UNIT DOSE: 10 MG
     Route: 048

REACTIONS (4)
  - ABDOMINAL PAIN LOWER [None]
  - IUCD COMPLICATION [None]
  - OVARIAN CYST [None]
  - VAGINAL HAEMORRHAGE [None]
